FAERS Safety Report 11999893 (Version 1)
Quarter: 2016Q1

REPORT INFORMATION
  Report Type: Spontaneous
  Country: US (occurrence: None)
  Receive Date: 20160203
  Receipt Date: 20160203
  Transmission Date: 20160526
  Serious: No
  Sender: FDA-Public Use
  Company Number: None

PATIENT

DRUGS (1)
  1. AZITHROMYCIN ANHYDROUS. [Suspect]
     Active Substance: AZITHROMYCIN ANHYDROUS
     Dosage: SUSPENSION ORAL 200 MG PER 5 ML BOTTLE  15 ML IN 1 BOTTLE
     Route: 048

REACTIONS (1)
  - Drug dispensing error [None]
